FAERS Safety Report 7449983-6 (Version None)
Quarter: 2011Q2

REPORT INFORMATION
  Report Type: 
  Country: None (occurrence: None)
  Receive Date: 20110421
  Receipt Date: 20110406
  Transmission Date: 20111010
  Serious: Yes (Death)
  Sender: FDA-Public Use
  Company Number: 030670

PATIENT
  Sex: Male
  Weight: 98 kg

DRUGS (6)
  1. CALCIUM CARBONATE [Concomitant]
  2. DEPAKOTE [Concomitant]
  3. LACOSAMIDE [Suspect]
     Indication: EPILEPSY
     Dosage: (400 MG ORAL)
     Route: 048
  4. ADDERALL 10 [Concomitant]
  5. ACETAMINOPHEN [Concomitant]
  6. OMEPRAZOLE [Concomitant]

REACTIONS (2)
  - CONTUSION [None]
  - CONVULSION [None]
